FAERS Safety Report 13982609 (Version 1)
Quarter: 2017Q3

REPORT INFORMATION
  Report Type: Spontaneous
  Country: US (occurrence: US)
  Receive Date: 20170918
  Receipt Date: 20170918
  Transmission Date: 20171128
  Serious: No
  Sender: FDA-Public Use
  Company Number: US-LEADIANT BIOSCIENCES INC-2016STPI000682

PATIENT
  Age: 42 Year
  Sex: Male

DRUGS (4)
  1. ANTIEMETICS AND ANTINAUSEANTS [Concomitant]
     Active Substance: UNSPECIFIED INGREDIENT
  2. MATULANE [Suspect]
     Active Substance: PROCARBAZINE HYDROCHLORIDE
     Indication: HODGKIN^S DISEASE
     Dosage: 200 MG, QD DAY 1-7 Q21D
     Route: 048
     Dates: start: 201608
  3. PREDNISONE. [Concomitant]
     Active Substance: PREDNISONE
  4. NEULASTA [Concomitant]
     Active Substance: PEGFILGRASTIM

REACTIONS (2)
  - Dysgeusia [Unknown]
  - Nausea [Unknown]

NARRATIVE: CASE EVENT DATE: 201608
